FAERS Safety Report 6740083-7 (Version None)
Quarter: 2010Q2

REPORT INFORMATION
  Report Type: 
  Country: None (occurrence: None)
  Receive Date: 20100525
  Receipt Date: 20091203
  Transmission Date: 20101027
  Serious: No
  Sender: FDA-Public Use
  Company Number: A0833184A

PATIENT
  Age: 76 Year
  Sex: Male

DRUGS (6)
  1. BACTROBAN [Suspect]
     Dosage: 1APP TWICE PER DAY
     Route: 061
     Dates: start: 20090101
  2. CILOSTAZOL [Concomitant]
  3. ANTI-CHOLESTEROL MEDICATION [Concomitant]
  4. RAMIPRIL [Concomitant]
  5. CRESTOR [Concomitant]
  6. GLUCOVANCE [Concomitant]

REACTIONS (1)
  - DRUG INEFFECTIVE [None]
